FAERS Safety Report 5146693-5 (Version None)
Quarter: 2006Q4

REPORT INFORMATION
  Report Type: 
  Country: None (occurrence: None)
  Receive Date: 20061107
  Receipt Date: 20061107
  Transmission Date: 20070319
  Serious: Yes (Life-Threatening, Hospitalization)
  Sender: FDA-Public Use
  Company Number: None

PATIENT
  Age: 16 Year
  Sex: Female
  Weight: 68.0396 kg

DRUGS (1)
  1. CLOZARIL [Suspect]
     Indication: BLOOD PRESSURE
     Dosage: 50 MG AM AND PM
     Dates: start: 20061011, end: 20061031

REACTIONS (7)
  - CARDIAC FAILURE CONGESTIVE [None]
  - DRUG INEFFECTIVE [None]
  - DRUG TOXICITY [None]
  - DYSPNOEA [None]
  - HYPERTENSION [None]
  - OXYGEN SATURATION DECREASED [None]
  - WEIGHT INCREASED [None]
